FAERS Safety Report 5690597-6 (Version None)
Quarter: 2008Q2

REPORT INFORMATION
  Report Type: 
  Country: None (occurrence: None)
  Receive Date: 20080401
  Receipt Date: 20080323
  Transmission Date: 20081010
  Serious: Yes (Other)
  Sender: FDA-Public Use
  Company Number: EG-ROCHE-554804

PATIENT
  Sex: Female

DRUGS (2)
  1. PEGASYS [Suspect]
     Dosage: STRENGTH: 180 MCG.
     Route: 065
     Dates: start: 20080315, end: 20080324
  2. PEGASYS [Suspect]
     Dosage: STRENGTH: 135 MCG.
     Route: 065
     Dates: start: 20070501, end: 20080208

REACTIONS (1)
  - HEMIPLEGIA [None]
